FAERS Safety Report 17985314 (Version 1)
Quarter: 2020Q3

REPORT INFORMATION
  Report Type: Spontaneous
  Country: US (occurrence: US)
  Receive Date: 20200706
  Receipt Date: 20200706
  Transmission Date: 20201103
  Serious: Yes (Other)
  Sender: FDA-Public Use
  Company Number: US-PFIZER INC-2020247740

PATIENT
  Age: 85 Year
  Sex: Female
  Weight: 60.78 kg

DRUGS (1)
  1. PREMARIN [Suspect]
     Active Substance: ESTROGENS, CONJUGATED
     Indication: VAGINAL INFECTION
     Dosage: UNK (QUANTITY FOR 90 DAYS: 42.5 G, 3 TUBES)
     Route: 067
     Dates: start: 2016

REACTIONS (7)
  - Hand deformity [Unknown]
  - Upper limb fracture [Unknown]
  - Head injury [Unknown]
  - Overweight [Unknown]
  - Fall [Unknown]
  - Rotator cuff syndrome [Unknown]
  - Pneumonia [Unknown]

NARRATIVE: CASE EVENT DATE: 2018
